FAERS Safety Report 8821889 (Version 1)
Quarter: 2012Q4

REPORT INFORMATION
  Report Type: 
  Country: BR (occurrence: BR)
  Receive Date: 20121002
  Receipt Date: 20121002
  Transmission Date: 20130627
  Serious: Yes (Other)
  Sender: FDA-Public Use
  Company Number: BR-ABBOTT-12P-020-0910010-00

PATIENT
  Age: 40 Year
  Sex: Female

DRUGS (7)
  1. HUMIRA 40 MG/ 0.8 ML PRE-FILLED SYRINGE [Suspect]
     Indication: CROHN^S DISEASE
  2. HUMIRA 40 MG/ 0.8 ML PRE-FILLED SYRINGE [Suspect]
     Indication: INTESTINAL STENOSIS
  3. RIFAMPICIN [Suspect]
     Indication: TUBERCULOSIS
  4. PYRAZINAMIDE [Suspect]
     Indication: TUBERCULOSIS
  5. ISONIAZID [Suspect]
     Indication: TUBERCULOSIS
  6. ETHAMBUTOL [Suspect]
     Indication: TUBERCULOSIS
  7. MESALAZINE [Concomitant]
     Indication: CROHN^S DISEASE

REACTIONS (5)
  - Drug-induced liver injury [Unknown]
  - Pulmonary tuberculosis [Recovered/Resolved]
  - Pyrexia [Unknown]
  - Asthenia [Unknown]
  - Abdominal symptom [Unknown]
